FAERS Safety Report 7828604-4 (Version None)
Quarter: 2011Q4

REPORT INFORMATION
  Report Type: 
  Country: None (occurrence: None)
  Receive Date: 20111020
  Receipt Date: 20111014
  Transmission Date: 20120403
  Serious: No
  Sender: FDA-Public Use
  Company Number: US-PFIZER INC-2011242894

PATIENT
  Sex: Female

DRUGS (2)
  1. IBUPROFEN (ADVIL) [Suspect]
     Indication: HEADACHE
     Dosage: 2 DF, 3X/DAY
     Route: 048
     Dates: start: 20111001, end: 20111001
  2. BUTALBITAL [Concomitant]
     Indication: MIGRAINE
     Dosage: UNK

REACTIONS (1)
  - DRUG INEFFECTIVE [None]
